FAERS Safety Report 17685615 (Version 6)
Quarter: 2021Q1

REPORT INFORMATION
  Report Type: Spontaneous
  Country: JP (occurrence: JP)
  Receive Date: 20200420
  Receipt Date: 20210129
  Transmission Date: 20210419
  Serious: Yes (Death, Hospitalization, Other)
  Sender: FDA-Public Use
  Company Number: JP-BRISTOL-MYERS SQUIBB COMPANY-BMS-2020-032216

PATIENT
  Age: 68 Year
  Sex: Male
  Weight: 68.1 kg

DRUGS (1)
  1. OPDIVO [Suspect]
     Active Substance: NIVOLUMAB
     Indication: GASTRIC CANCER
     Dosage: 240 MILLIGRAM
     Route: 041
     Dates: start: 20200401

REACTIONS (9)
  - Disseminated intravascular coagulation [Recovered/Resolved]
  - Ascites [Unknown]
  - Hepatitis fulminant [Fatal]
  - Hyperkalaemia [Unknown]
  - Renal disorder [Unknown]
  - Blood pressure decreased [Unknown]
  - Hepatic encephalopathy [Unknown]
  - Septic shock [Unknown]
  - Hypoalbuminaemia [Unknown]

NARRATIVE: CASE EVENT DATE: 20200415
